FAERS Safety Report 8251021-2 (Version None)
Quarter: 2012Q2

REPORT INFORMATION
  Report Type: 
  Country: None (occurrence: None)
  Receive Date: 20120402
  Receipt Date: 20120328
  Transmission Date: 20120825
  Serious: No
  Sender: FDA-Public Use
  Company Number: US-PFIZER INC-2012080035

PATIENT
  Sex: Male
  Weight: 74.83 kg

DRUGS (14)
  1. CARVEDILOL [Concomitant]
     Indication: HYPERTENSION
     Dosage: UNK
  2. PRAVASTATIN [Concomitant]
     Indication: BLOOD CHOLESTEROL INCREASED
     Dosage: UNK
  3. FISH OIL [Concomitant]
     Dosage: UNK
  4. CHANTIX [Suspect]
     Indication: SMOKING CESSATION THERAPY
     Dosage: 0.5 MG, 1X/DAY
     Route: 048
     Dates: start: 20120101, end: 20120101
  5. PLAVIX [Concomitant]
     Dosage: UNK
  6. AMLODIPINE [Concomitant]
     Indication: HYPERTENSION
     Dosage: UNK
  7. LISINOPRIL [Concomitant]
     Indication: HYPERTENSION
     Dosage: UNK
  8. POTASSIUM CHLORIDE [Concomitant]
     Dosage: UNK
  9. FUROSEMIDE [Concomitant]
     Dosage: UNK
  10. MULTI-VITAMINS [Concomitant]
     Dosage: UNK
  11. TERAZOSIN [Concomitant]
     Dosage: UNK
  12. ACETYLSALICYLIC ACID [Concomitant]
     Dosage: UNK
  13. CHANTIX [Suspect]
     Dosage: 1 MG, 2X/DAY
     Route: 048
     Dates: start: 20120101
  14. VITAMIN D [Concomitant]
     Dosage: UNK

REACTIONS (1)
  - PAIN IN EXTREMITY [None]
